FAERS Safety Report 6142785-2 (Version None)
Quarter: 2009Q2

REPORT INFORMATION
  Report Type: 
  Country: None (occurrence: None)
  Receive Date: 20090403
  Receipt Date: 20090326
  Transmission Date: 20091009
  Serious: Yes (Hospitalization)
  Sender: FDA-Public Use
  Company Number: US-AVENTIS-200912525US

PATIENT
  Age: 70 Year
  Sex: Female

DRUGS (2)
  1. AMARYL [Suspect]
     Dates: end: 20090101
  2. METFORMIN HCL [Suspect]
     Indication: DIABETES MELLITUS
     Dates: end: 20090101

REACTIONS (4)
  - BLADDER DISORDER [None]
  - HYPERGLYCAEMIA [None]
  - INTESTINAL OBSTRUCTION [None]
  - KIDNEY INFECTION [None]
